FAERS Safety Report 21303223 (Version 1)
Quarter: 2022Q3

REPORT INFORMATION
  Report Type: Spontaneous
  Country: US (occurrence: US)
  Receive Date: 20220907
  Receipt Date: 20220907
  Transmission Date: 20221026
  Serious: No
  Sender: FDA-Public Use
  Company Number: US-PFIZER INC-202201135543

PATIENT
  Age: 73 Year
  Sex: Female
  Weight: 51.71 kg

DRUGS (2)
  1. BOSULIF [Suspect]
     Active Substance: BOSUTINIB MONOHYDRATE
     Indication: Leukaemia
     Dosage: 200 MG, 1X/DAY
     Dates: start: 202205, end: 20220901
  2. BOSULIF [Suspect]
     Active Substance: BOSUTINIB MONOHYDRATE
     Dosage: (SHE TOOK 100MG ON FRIDAY AND HAS BEEN OUT SINCE)
     Dates: start: 20220902, end: 20220902

REACTIONS (2)
  - Arthralgia [Unknown]
  - Bone pain [Unknown]

NARRATIVE: CASE EVENT DATE: 20220905
